FAERS Safety Report 23217250 (Version 1)
Quarter: 2023Q4

REPORT INFORMATION
  Report Type: Spontaneous
  Country: US (occurrence: US)
  Receive Date: 20231122
  Receipt Date: 20231122
  Transmission Date: 20240109
  Serious: No
  Sender: FDA-Public Use
  Company Number: US-Dermavant-000902

PATIENT
  Sex: Female

DRUGS (1)
  1. TAPINAROF [Suspect]
     Active Substance: TAPINAROF

REACTIONS (2)
  - Application site discolouration [Recovering/Resolving]
  - Product use in unapproved indication [Unknown]
